FAERS Safety Report 8212298-2 (Version None)
Quarter: 2012Q1

REPORT INFORMATION
  Report Type: 
  Country: None (occurrence: None)
  Receive Date: 20120315
  Receipt Date: 20120305
  Transmission Date: 20120608
  Serious: Yes (Hospitalization)
  Sender: FDA-Public Use
  Company Number: NL-ROCHE-1046114

PATIENT
  Sex: Female
  Weight: 45 kg

DRUGS (9)
  1. METHOTREXATE [Concomitant]
  2. FLUTICASONE PROPIONATE/SALMETEROL [Concomitant]
     Dosage: 25/250 MG
  3. CYRESS [Concomitant]
  4. SPIRIVA [Concomitant]
  5. THEOPHYLLINE [Concomitant]
  6. FOLIC ACID [Concomitant]
  7. PLAQUENIL [Concomitant]
  8. TRAMADOL HCL [Concomitant]
  9. ACTEMRA [Suspect]
     Indication: RHEUMATOID ARTHRITIS
     Route: 042
     Dates: start: 20111114, end: 20111114

REACTIONS (1)
  - CHRONIC OBSTRUCTIVE PULMONARY DISEASE [None]
